FAERS Safety Report 12660961 (Version 3)
Quarter: 2016Q4

REPORT INFORMATION
  Report Type: Spontaneous
  Country: US (occurrence: US)
  Receive Date: 20160817
  Receipt Date: 20161106
  Transmission Date: 20170207
  Serious: No
  Sender: FDA-Public Use
  Company Number: US-RELYPSA-RLY2016001492

PATIENT
  Sex: Female

DRUGS (10)
  1. METOPROLOL TARTRATE. [Concomitant]
     Active Substance: METOPROLOL TARTRATE
  2. ASPIRIN                            /00002701/ [Concomitant]
     Active Substance: ASPIRIN
  3. LOSARTAN POTASSIUM. [Concomitant]
     Active Substance: LOSARTAN POTASSIUM
  4. IRON [Concomitant]
     Active Substance: IRON
  5. FERROUS SULFATE. [Concomitant]
     Active Substance: FERROUS SULFATE
  6. TYLENOL EXTRA STRENGTH [Concomitant]
     Active Substance: ACETAMINOPHEN
  7. LANTUS [Concomitant]
     Active Substance: INSULIN GLARGINE
  8. BUPROPION HCL ER [Concomitant]
     Active Substance: BUPROPION HYDROCHLORIDE
  9. VELTASSA [Suspect]
     Active Substance: PATIROMER
     Indication: HYPERKALAEMIA
     Dosage: 8.4 G, QD
     Route: 048
     Dates: start: 20160513
  10. FLAXSEED [Concomitant]
     Active Substance: FLAX SEED

REACTIONS (3)
  - Muscle spasms [Unknown]
  - Nausea [Unknown]
  - Abdominal pain upper [Unknown]
